FAERS Safety Report 5847943-X (Version None)
Quarter: 2008Q3

REPORT INFORMATION
  Report Type: 
  Country: None (occurrence: None)
  Receive Date: 20080818
  Receipt Date: 20080717
  Transmission Date: 20090109
  Serious: No
  Sender: FDA-Public Use
  Company Number: US-BAYER-200816821NA

PATIENT
  Age: 39 Year
  Sex: Female
  Weight: 52 kg

DRUGS (1)
  1. MIRENA [Suspect]
     Indication: CONTRACEPTION
     Route: 015
     Dates: start: 20020101, end: 20070918

REACTIONS (17)
  - ABDOMINAL DISTENSION [None]
  - ACNE [None]
  - ALOPECIA [None]
  - ANXIETY [None]
  - ARTHRALGIA [None]
  - BLOOD OESTROGEN ABNORMAL [None]
  - BREAST TENDERNESS [None]
  - DIZZINESS [None]
  - GASTROOESOPHAGEAL REFLUX DISEASE [None]
  - HEADACHE [None]
  - INSOMNIA [None]
  - IRRITABILITY [None]
  - LIBIDO DECREASED [None]
  - ORGASMIC SENSATION DECREASED [None]
  - PREMENSTRUAL SYNDROME [None]
  - PRURITUS [None]
  - WEIGHT INCREASED [None]
